FAERS Safety Report 8519620-8 (Version None)
Quarter: 2012Q3

REPORT INFORMATION
  Report Type: 
  Country: None (occurrence: None)
  Receive Date: 20120718
  Receipt Date: 20120703
  Transmission Date: 20120928
  Serious: No
  Sender: FDA-Public Use
  Company Number: US-009507513-1207USA001542

PATIENT

DRUGS (4)
  1. METOPROLOL SUCCINATE [Concomitant]
  2. THYROID TAB [Concomitant]
  3. AZITHROMYCIN [Suspect]
     Indication: EYE IRRITATION
     Dosage: 1 GTT, BID
     Route: 047
     Dates: start: 20120622
  4. WARFARIN SODIUM [Concomitant]

REACTIONS (3)
  - DRUG INEFFECTIVE [None]
  - PRODUCT PACKAGING QUANTITY ISSUE [None]
  - EYE IRRITATION [None]
